FAERS Safety Report 20460303 (Version 1)
Quarter: 2022Q1

REPORT INFORMATION
  Report Type: Spontaneous
  Country: US (occurrence: US)
  Receive Date: 20220211
  Receipt Date: 20220211
  Transmission Date: 20220423
  Serious: No
  Sender: FDA-Public Use
  Company Number: US-ALKEM LABORATORIES LIMITED-US-ALKEM-2021-02366

PATIENT
  Age: 68 Year
  Sex: Male

DRUGS (1)
  1. CEPHALEXIN [Suspect]
     Active Substance: CEPHALEXIN
     Indication: Infection
     Dosage: 1 DOSAGE FORM (1 CAPSULE EVERY 6 HRS FOR 10 DAYS)
     Route: 048
     Dates: start: 20210327, end: 20210409

REACTIONS (1)
  - Parosmia [Not Recovered/Not Resolved]

NARRATIVE: CASE EVENT DATE: 20210327
